FAERS Safety Report 6693297-9 (Version None)
Quarter: 2010Q2

REPORT INFORMATION
  Report Type: 
  Country: None (occurrence: None)
  Receive Date: 20100422
  Receipt Date: 20100415
  Transmission Date: 20101027
  Serious: Yes (Other)
  Sender: FDA-Public Use
  Company Number: GB-ABBOTT-10P-167-0639139-00

PATIENT
  Age: 55 Year
  Sex: Female

DRUGS (5)
  1. VALPROATE SODIUM [Suspect]
     Indication: SCHIZOPHRENIA
     Route: 048
     Dates: start: 20090810
  2. CLOZAPINE [Suspect]
     Indication: SCHIZOPHRENIA
     Dates: start: 20090911
  3. QUETIAPINE [Suspect]
     Indication: SCHIZOPHRENIA
     Dates: start: 20091013
  4. IRBESARTAN [Concomitant]
     Indication: HYPERTENSION
  5. LANSOPRAZOLE [Concomitant]
     Indication: REFLUX OESOPHAGITIS

REACTIONS (7)
  - ELECTROCARDIOGRAM ABNORMAL [None]
  - LOWER RESPIRATORY TRACT INFECTION [None]
  - MYOCARDITIS [None]
  - NEUTROPENIA [None]
  - PYREXIA [None]
  - TACHYCARDIA [None]
  - WHITE BLOOD CELL COUNT DECREASED [None]
